FAERS Safety Report 10233361 (Version 5)
Quarter: 2016Q3

REPORT INFORMATION
  Report Type: Spontaneous
  Country: US (occurrence: US)
  Receive Date: 20140612
  Receipt Date: 20160919
  Transmission Date: 20161109
  Serious: Yes (Other)
  Sender: FDA-Public Use
  Company Number: US-PFIZER INC-2014161875

PATIENT
  Sex: Male

DRUGS (1)
  1. LYRICA [Suspect]
     Active Substance: PREGABALIN
     Indication: PAIN
     Dosage: UNK

REACTIONS (6)
  - Pain in extremity [Unknown]
  - Insomnia [Unknown]
  - Drug effect incomplete [Unknown]
  - Hypoacusis [Unknown]
  - Pain [Unknown]
  - Hypoaesthesia [Unknown]
